FAERS Safety Report 22258898 (Version 1)
Quarter: 2023Q2

REPORT INFORMATION
  Report Type: Spontaneous
  Country: IT (occurrence: IT)
  Receive Date: 20230427
  Receipt Date: 20230427
  Transmission Date: 20230722
  Serious: Yes (Other)
  Sender: FDA-Public Use
  Company Number: IT-AMGEN-ITASP2023069447

PATIENT
  Age: 72 Year
  Sex: Male

DRUGS (3)
  1. VECTIBIX [Suspect]
     Active Substance: PANITUMUMAB
     Indication: Colon cancer
     Dosage: 278.4 MILLIGRAM
     Route: 040
     Dates: start: 20230221
  2. FLUOROURACIL [Suspect]
     Active Substance: FLUOROURACIL
     Indication: Colon cancer
     Dosage: 3091 MILLIGRAM
     Route: 042
     Dates: start: 20230220
  3. FLUOROURACIL [Suspect]
     Active Substance: FLUOROURACIL
     Dosage: 515.2 MILLIGRAM
     Route: 042
     Dates: start: 20230221, end: 20230306

REACTIONS (1)
  - Thrombocytopenia [Recovering/Resolving]

NARRATIVE: CASE EVENT DATE: 20230306
